FAERS Safety Report 14639297 (Version 1)
Quarter: 2018Q1

REPORT INFORMATION
  Report Type: Spontaneous
  Country: FR (occurrence: FR)
  Receive Date: 20180315
  Receipt Date: 20180315
  Transmission Date: 20180509
  Serious: Yes (Other)
  Sender: FDA-Public Use
  Company Number: FR-MERCK KGAA-2043769

PATIENT
  Age: 37 Year
  Sex: Female

DRUGS (1)
  1. NOVOTHYROX [Suspect]
     Active Substance: LEVOTHYROXINE SODIUM
     Indication: HYPOTHYROIDISM
     Dates: end: 201709

REACTIONS (30)
  - Thinking abnormal [None]
  - Fatigue [None]
  - Crying [None]
  - Depersonalisation/derealisation disorder [None]
  - Vision blurred [None]
  - Somnolence [None]
  - Mood swings [None]
  - Loss of personal independence in daily activities [None]
  - Palpitations [None]
  - Panic attack [None]
  - Anger [None]
  - Abdominal pain upper [Recovered/Resolved]
  - Speech disorder [Recovered/Resolved]
  - Impaired driving ability [None]
  - Depression [None]
  - Alopecia [Recovered/Resolved]
  - Drug intolerance [None]
  - Anxiety [Recovered/Resolved]
  - Social avoidant behaviour [None]
  - Thyroxine increased [None]
  - Dizziness [Recovered/Resolved]
  - Migraine [None]
  - Pain [None]
  - Diplopia [Recovered/Resolved]
  - Nervousness [None]
  - Headache [Recovered/Resolved]
  - Suicidal ideation [None]
  - Loss of libido [None]
  - Blood thyroid stimulating hormone increased [None]
  - Nausea [None]

NARRATIVE: CASE EVENT DATE: 2017
